FAERS Safety Report 9125247 (Version 1)
Quarter: 2013Q1

REPORT INFORMATION
  Report Type: Spontaneous
  Country: US (occurrence: US)
  Receive Date: 20130227
  Receipt Date: 20130227
  Transmission Date: 20140127
  Serious: No
  Sender: FDA-Public Use
  Company Number: US-PFIZER INC-2013071729

PATIENT
  Sex: Female

DRUGS (2)
  1. EFFEXOR [Suspect]
     Indication: DEPRESSION
     Dosage: UNK
  2. CYMBALTA [Suspect]
     Indication: DEPRESSION
     Dosage: UNK

REACTIONS (2)
  - Hyperhidrosis [Not Recovered/Not Resolved]
  - Drug ineffective [Unknown]
